FAERS Safety Report 15838298 (Version 1)
Quarter: 2018Q4

REPORT INFORMATION
  Report Type: Spontaneous
  Country: US (occurrence: US)
  Receive Date: 20181222
  Receipt Date: 20181222
  Transmission Date: 20190205
  Serious: Yes (Hospitalization)
  Sender: FDA-Public Use
  Company Number: None

PATIENT
  Age: 81 Year
  Sex: Male
  Weight: 98.7 kg

DRUGS (2)
  1. CASODEX [Suspect]
     Active Substance: BICALUTAMIDE
     Dates: end: 20150518
  2. LEUPROLIDE [Suspect]
     Active Substance: LEUPROLIDE
     Dates: end: 20150219

REACTIONS (1)
  - Intestinal adenocarcinoma [None]

NARRATIVE: CASE EVENT DATE: 20181105
